FAERS Safety Report 5799801-7 (Version None)
Quarter: 2008Q2

REPORT INFORMATION
  Report Type: 
  Country: None (occurrence: None)
  Receive Date: 20080601
  Receipt Date: 20080131
  Transmission Date: 20081010
  Serious: No
  Sender: FDA-Public Use
  Company Number: US200802000240

PATIENT
  Age: 50 Year
  Sex: Female

DRUGS (2)
  1. BYETTA [Suspect]
     Indication: TYPE 2 DIABETES MELLITUS
     Dosage: 5 UG, 2/D, SUBCUTANEOUS ; 10 UG, 2/D, SUBCUTANEOUS
     Route: 058
     Dates: end: 20070901
  2. METFORMIN HCL [Concomitant]

REACTIONS (1)
  - BLOOD GLUCOSE INCREASED [None]
